FAERS Safety Report 5726877-5 (Version None)
Quarter: 2008Q2

REPORT INFORMATION
  Report Type: 
  Country: None (occurrence: None)
  Receive Date: 20080502
  Receipt Date: 20080429
  Transmission Date: 20081010
  Serious: Yes (Death, Hospitalization)
  Sender: FDA-Public Use
  Company Number: IN-PFIZER INC-2008036293

PATIENT
  Sex: Male
  Weight: 48 kg

DRUGS (13)
  1. IRINOTECAN HCL [Suspect]
     Indication: COLORECTAL CANCER METASTATIC
     Route: 042
     Dates: start: 20080404, end: 20080420
  2. BLINDED SU11248 (SU011248) [Suspect]
     Indication: COLORECTAL CANCER METASTATIC
     Route: 048
     Dates: start: 20080404, end: 20080424
  3. LEUCOVORIN CALCIUM [Suspect]
     Indication: COLORECTAL CANCER METASTATIC
     Route: 042
     Dates: start: 20080404, end: 20080420
  4. FLUOROURACIL [Suspect]
     Indication: COLORECTAL CANCER METASTATIC
     Route: 042
     Dates: start: 20080404, end: 20080420
  5. FLUOROURACIL [Suspect]
     Route: 042
     Dates: start: 20080404, end: 20080420
  6. DOMPERIDONE/PANTOPRAZOLE [Concomitant]
     Route: 048
  7. CYPROHEPTADINE HCL [Concomitant]
     Route: 048
  8. FUROSEMIDE [Concomitant]
     Route: 048
  9. ONDANSETRON [Concomitant]
     Route: 048
  10. PROCHLORPERAZINE [Concomitant]
     Route: 048
  11. DIGENE TABLET [Concomitant]
  12. CARBOXYMETHYLCELLULOSE SODIUM [Concomitant]
  13. ANTACIDS, OTHER COMBINATIONS [Concomitant]
     Route: 048

REACTIONS (9)
  - ANAEMIA [None]
  - ANURIA [None]
  - ASCITES [None]
  - ASTHENIA [None]
  - CONSTIPATION [None]
  - NAUSEA [None]
  - NEUTROPENIA [None]
  - SEPSIS [None]
  - VOMITING [None]
